FAERS Safety Report 11692080 (Version 1)
Quarter: 2015Q4

REPORT INFORMATION
  Report Type: Spontaneous
  Country: BR (occurrence: BR)
  Receive Date: 20151103
  Receipt Date: 20151103
  Transmission Date: 20160304
  Serious: Yes (Other)
  Sender: FDA-Public Use
  Company Number: BR-ROCHE-1653557

PATIENT
  Sex: Male
  Weight: 88 kg

DRUGS (3)
  1. VASOPRIL (BRAZIL) [Concomitant]
     Indication: HYPERTENSION
     Route: 065
  2. VITAMIN D3 [Concomitant]
     Active Substance: CHOLECALCIFEROL
  3. RIVOTRIL [Suspect]
     Active Substance: CLONAZEPAM
     Indication: LABYRINTHITIS
     Route: 065
     Dates: start: 1990

REACTIONS (5)
  - Memory impairment [Not Recovered/Not Resolved]
  - Somnolence [Unknown]
  - Infertility [Not Recovered/Not Resolved]
  - Drug dependence [Unknown]
  - Panic disorder [Not Recovered/Not Resolved]

NARRATIVE: CASE EVENT DATE: 2010
